FAERS Safety Report 20428902 (Version 1)
Quarter: 2022Q1

REPORT INFORMATION
  Report Type: Spontaneous
  Country: US (occurrence: US)
  Receive Date: 20220204
  Receipt Date: 20220204
  Transmission Date: 20220423
  Serious: No
  Sender: FDA-Public Use
  Company Number: US-ALLERGAN-2202642US

PATIENT
  Age: 44 Year
  Sex: Female

DRUGS (1)
  1. VUITY [Suspect]
     Active Substance: PILOCARPINE HYDROCHLORIDE
     Indication: Product used for unknown indication
     Dosage: 2 GTT
     Dates: start: 20220118, end: 20220118

REACTIONS (3)
  - Facial pain [Unknown]
  - Visual impairment [Unknown]
  - Accommodation disorder [Unknown]
